FAERS Safety Report 9742617 (Version 3)
Quarter: 2015Q3

REPORT INFORMATION
  Report Type: Spontaneous
  Country: US (occurrence: US)
  Receive Date: 20131210
  Receipt Date: 20150804
  Transmission Date: 20151125
  Serious: No
  Sender: FDA-Public Use
  Company Number: US-GILEAD-2009-0024731

PATIENT
  Age: 70 Year
  Sex: Male
  Weight: 92.99 kg

DRUGS (19)
  1. FLOMAX [Concomitant]
     Active Substance: TAMSULOSIN HYDROCHLORIDE
  2. COREG [Concomitant]
     Active Substance: CARVEDILOL
  3. PARACETAMOL/HYDROCODONE BITARTRATE [Concomitant]
  4. IMDUR [Concomitant]
     Active Substance: ISOSORBIDE MONONITRATE
  5. LASIX [Concomitant]
     Active Substance: FUROSEMIDE
  6. ALPRAZOLAM. [Concomitant]
     Active Substance: ALPRAZOLAM
  7. PROVENTIL [Concomitant]
     Active Substance: ALBUTEROL
  8. VERELAN [Concomitant]
     Active Substance: VERAPAMIL HYDROCHLORIDE
  9. NEXIUM [Concomitant]
     Active Substance: ESOMEPRAZOLE MAGNESIUM
  10. SMG/TMPDS 800/160 [Concomitant]
  11. ADVAIR HFA [Concomitant]
     Active Substance: FLUTICASONE PROPIONATE\SALMETEROL XINAFOATE
  12. SPIRIVA [Concomitant]
     Active Substance: TIOTROPIUM BROMIDE MONOHYDRATE
  13. PLAVIX [Concomitant]
     Active Substance: CLOPIDOGREL BISULFATE
  14. LETAIRIS [Suspect]
     Active Substance: AMBRISENTAN
     Indication: PULMONARY ARTERIAL HYPERTENSION
     Route: 048
     Dates: start: 20090923
  15. SINGULAIR [Concomitant]
     Active Substance: MONTELUKAST SODIUM
  16. FLOMAX [Concomitant]
     Active Substance: TAMSULOSIN HYDROCHLORIDE
  17. ASPIRIN. [Concomitant]
     Active Substance: ASPIRIN
  18. POTASSIUM CHLORIDE. [Concomitant]
     Active Substance: POTASSIUM CHLORIDE
  19. LIPITOR [Concomitant]
     Active Substance: ATORVASTATIN CALCIUM

REACTIONS (2)
  - Unevaluable event [Unknown]
  - Oedema peripheral [Unknown]
